FAERS Safety Report 19454420 (Version 1)
Quarter: 2021Q2

REPORT INFORMATION
  Report Type: Spontaneous
  Country: TR (occurrence: TR)
  Receive Date: 20210623
  Receipt Date: 20210623
  Transmission Date: 20210717
  Serious: Yes (Other)
  Sender: FDA-Public Use
  Company Number: NVSC2020TR350196

PATIENT
  Age: 46 Year
  Sex: Male

DRUGS (2)
  1. TRILEPTAL [Suspect]
     Active Substance: OXCARBAZEPINE
     Indication: EPILEPSY
  2. TRILEPTAL [Suspect]
     Active Substance: OXCARBAZEPINE
     Indication: NEOPLASM
     Dosage: 2.5 DF, 300 MG IN THE MORNING, 2 TABLETS IN THE EVENING AND HE USED THE MEDICINE FOR MORE THAN 10 YE
     Route: 065

REACTIONS (3)
  - Product supply issue [Unknown]
  - Brain neoplasm [Unknown]
  - Seizure [Unknown]
